FAERS Safety Report 15308771 (Version 2)
Quarter: 2018Q3

REPORT INFORMATION
  Report Type: Spontaneous
  Country: US (occurrence: US)
  Receive Date: 20180822
  Receipt Date: 20180828
  Transmission Date: 20181010
  Serious: Yes (Other)
  Sender: FDA-Public Use
  Company Number: US-BIOGEN-2018BI00622822

PATIENT
  Age: 54 Year
  Sex: Female

DRUGS (1)
  1. AVONEX [Suspect]
     Active Substance: INTERFERON BETA-1A
     Indication: MULTIPLE SCLEROSIS
     Route: 030
     Dates: start: 20180214

REACTIONS (11)
  - Liver disorder [Unknown]
  - Blood iron increased [Unknown]
  - Motor dysfunction [Recovered/Resolved]
  - Asthenia [Unknown]
  - Muscular weakness [Unknown]
  - Hypotonia [Unknown]
  - Fine motor skill dysfunction [Unknown]
  - Chills [Unknown]
  - Diabetes mellitus [Unknown]
  - Tremor [Unknown]
  - Groin pain [Unknown]

NARRATIVE: CASE EVENT DATE: 20180731
